FAERS Safety Report 23175373 (Version 3)
Quarter: 2023Q4

REPORT INFORMATION
  Report Type: Spontaneous
  Country: JP (occurrence: JP)
  Receive Date: 20231113
  Receipt Date: 20231211
  Transmission Date: 20240110
  Serious: Yes (Hospitalization, Disabling, Other)
  Sender: FDA-Public Use
  Company Number: JP-GLAXOSMITHKLINE-JP2023JPN143607

PATIENT

DRUGS (10)
  1. DAPRODUSTAT [Suspect]
     Active Substance: DAPRODUSTAT
     Indication: Nephrogenic anaemia
     Dosage: 6 MG, 1D, AFTER BREAKFAST
     Route: 048
     Dates: start: 20230704, end: 20231017
  2. AZILSARTAN KAMEDOXOMIL [Concomitant]
     Active Substance: AZILSARTAN KAMEDOXOMIL
     Indication: Hypertension
     Dosage: 10 MG, BID
     Route: 048
     Dates: start: 20180724
  3. NIFEDIPINE [Concomitant]
     Active Substance: NIFEDIPINE
     Indication: Hypertension
     Dosage: 20 MG, BID
     Route: 048
     Dates: start: 20190806
  4. VOGLIBOSE SW [Concomitant]
     Indication: Type 2 diabetes mellitus
     Dosage: 0.3 MG, TID
     Route: 048
     Dates: start: 20180703, end: 20231007
  5. ATORVASTATIN CALCIUM TRIHYDRATE [Concomitant]
     Active Substance: ATORVASTATIN CALCIUM TRIHYDRATE
     Indication: Dyslipidaemia
     Dosage: 5 MG, 1D
     Route: 048
     Dates: start: 20180703
  6. ASPIRIN [Concomitant]
     Active Substance: ASPIRIN
     Indication: Carotid artery stenosis
     Dosage: 100 MG, 1D
     Route: 048
     Dates: start: 20180703
  7. VONOPRAZAN FUMARATE [Concomitant]
     Active Substance: VONOPRAZAN FUMARATE
     Indication: Duodenal ulcer
     Dosage: 20 MG, 1D
     Route: 048
     Dates: start: 20230512
  8. ALLOID G [Concomitant]
     Active Substance: SODIUM ALGINATE
     Indication: Duodenal ulcer
     Dosage: 20 ML, QID
     Route: 048
     Dates: start: 20230512, end: 20231007
  9. P TOL [Concomitant]
     Indication: Hyperphosphataemia
     Dosage: 750 MG, BID
     Route: 048
     Dates: start: 20210706, end: 20231007
  10. ROXADUSTAT [Concomitant]
     Active Substance: ROXADUSTAT
     Indication: Nephrogenic anaemia
     Dosage: 100 MG

REACTIONS (5)
  - Cerebral infarction [Not Recovered/Not Resolved]
  - Cerebral small vessel ischaemic disease [Not Recovered/Not Resolved]
  - Aphasia [Not Recovered/Not Resolved]
  - Overdose [Unknown]
  - Off label use [Unknown]

NARRATIVE: CASE EVENT DATE: 20231015
